FAERS Safety Report 8757877 (Version 1)
Quarter: 2012Q4

REPORT INFORMATION
  Report Type: Report from Study
  Country: JP (occurrence: JP)
  Receive Date: 20120828
  Receipt Date: 20120828
  Transmission Date: 20130627
  Serious: Yes (Other)
  Sender: FDA-Public Use
  Company Number: JP-VERTEX PHARMACEUTICAL INC.-2012-019981

PATIENT
  Age: 69 Year
  Sex: Male

DRUGS (22)
  1. VX-950 [Suspect]
     Indication: HEPATITIS C
     Dosage: 1500 mg, qd
     Route: 048
     Dates: start: 20120514, end: 20120605
  2. VX-950 [Suspect]
     Dosage: 1000 UNK, UNK
     Route: 048
     Dates: start: 20120606, end: 20120624
  3. VX-950 [Suspect]
     Dosage: 500 UNK, UNK
     Dates: start: 20120625, end: 20120806
  4. RIBAVIRIN [Concomitant]
     Indication: HEPATITIS C
     Dosage: 800 mg, qd
     Route: 048
     Dates: start: 20120514, end: 20120605
  5. RIBAVIRIN [Concomitant]
     Dosage: 600 UNK, UNK
     Dates: start: 20120606, end: 20120624
  6. RIBAVIRIN [Concomitant]
     Dosage: 600 mg, qod
     Route: 048
     Dates: start: 20120625
  7. RIBAVIRIN [Concomitant]
     Dosage: UNK
     Route: 048
     Dates: end: 20120708
  8. RIBAVIRIN [Concomitant]
     Dosage: 600 mg, qod
     Route: 048
     Dates: start: 20120709
  9. ALLOZYM [Concomitant]
     Dosage: 200 mg, qd
     Route: 048
  10. LIVALO [Concomitant]
     Dosage: 1 mg, qd
     Route: 048
  11. OMERAP [Concomitant]
     Dosage: 20 mg, qd
     Route: 048
  12. REBAMIPIDE [Concomitant]
     Dosage: 300 mg, qd
     Route: 048
  13. UNISIA [Concomitant]
     Dosage: 1 UNK, UNK
     Route: 048
  14. ACTOS [Concomitant]
     Dosage: 30 mg, qd
     Route: 048
  15. LIMARMONE [Concomitant]
     Dosage: 15 mg, UNK
     Route: 048
  16. PEGINTRON                          /01543001/ [Concomitant]
     Indication: HEPATITIS C
     Dosage: 1.5 UNK, UNK
     Route: 058
     Dates: start: 20120514
  17. PEGINTRON                          /01543001/ [Concomitant]
     Dosage: 1.09 UNK, UNK
     Route: 058
  18. HUSTAZOL                           /00398402/ [Concomitant]
     Dosage: 10 mg, prn
     Route: 048
  19. LENDORMIN [Concomitant]
     Dosage: 0.25 mg, UNK
     Route: 048
  20. HYPEN                              /00340101/ [Concomitant]
     Dosage: 200 mg, prn
  21. PARIET [Concomitant]
     Dosage: 10 mg, qd
     Route: 048
  22. MUCOSTA [Concomitant]
     Dosage: 100 mg, qd
     Route: 048

REACTIONS (1)
  - Retinal haemorrhage [Unknown]
